FAERS Safety Report 7174762-7 (Version None)
Quarter: 2010Q4

REPORT INFORMATION
  Report Type: 
  Country: None (occurrence: None)
  Receive Date: 20101219
  Receipt Date: 20100408
  Transmission Date: 20110411
  Serious: No
  Sender: FDA-Public Use
  Company Number: US-AMGEN-KDL404356

PATIENT

DRUGS (10)
  1. ENBREL [Suspect]
     Indication: PRODUCT USED FOR UNKNOWN INDICATION
     Dosage: 50 MG, 2 TIMES/WK
     Route: 058
     Dates: start: 20100402
  2. CENTRUM SILVER [Concomitant]
     Dosage: UNK UNK, UNK
  3. LOVAZA [Concomitant]
     Dosage: UNK UNK, UNK
  4. CYANOCOBALAMIN [Concomitant]
     Dosage: 500 A?G, UNK
  5. NITROFURANTOIN [Concomitant]
     Dosage: 100 MG, UNK
  6. OMEPRAZOLE [Concomitant]
     Dosage: 10 MG, UNK
  7. ETHINYL ESTRADIOL AND NORETHINDRONE [Concomitant]
     Dosage: UNK UNK, UNK
  8. TPN [Concomitant]
     Dosage: UNK UNK, UNK
  9. OSCAL [Concomitant]
     Dosage: UNK UNK, UNK
  10. ZINC [Concomitant]
     Dosage: 30 MG, UNK

REACTIONS (2)
  - CYSTITIS [None]
  - URINARY TRACT INFECTION [None]
